FAERS Safety Report 12669848 (Version 9)
Quarter: 2017Q1

REPORT INFORMATION
  Report Type: Report from Study
  Country: BR (occurrence: BR)
  Receive Date: 20160819
  Receipt Date: 20170315
  Transmission Date: 20170428
  Serious: Yes (Hospitalization, Other)
  Sender: FDA-Public Use
  Company Number: PHHY2016BR111498

PATIENT
  Age: 91 Year
  Sex: Female
  Weight: 38 kg

DRUGS (14)
  1. EXJADE [Suspect]
     Active Substance: DEFERASIROX
     Dosage: 2 DF, UNK
     Route: 048
  2. VITAMIN B COMPLEX [Concomitant]
     Active Substance: CYANOCOBALAMIN\DEXPANTHENOL\NIACINAMIDE\PYRIDOXINE HYDROCHLORIDE\RIBOFLAVIN 5^-PHOSPHATE SODIUM\THIAMINE HYDROCHLORIDE\VITAMIN B COMPLEX
     Indication: PRODUCT USED FOR UNKNOWN INDICATION
     Dosage: 1 DF, UNK (25 MG)
     Route: 048
  3. NORIPURUM [Concomitant]
     Active Substance: IRON POLYMALTOSE
     Indication: PRODUCT USED FOR UNKNOWN INDICATION
     Route: 065
  4. EXJADE [Suspect]
     Active Substance: DEFERASIROX
     Indication: SICKLE CELL ANAEMIA
     Dosage: 10 MG/KG, QD (500 MG)
     Route: 048
     Dates: start: 201605
  5. EXJADE [Suspect]
     Active Substance: DEFERASIROX
     Dosage: 500 MG, QD (1 DISPERSIBLE TABLET OF 500MG)
     Route: 048
     Dates: start: 201605
  6. OMEPRAZOLE. [Concomitant]
     Active Substance: OMEPRAZOLE
     Indication: PRODUCT USED FOR UNKNOWN INDICATION
     Dosage: 1 DF, QD
     Route: 048
  7. FOLIC ACID. [Concomitant]
     Active Substance: FOLIC ACID
     Indication: SICKLE CELL ANAEMIA
     Dosage: 1 DF, QD
     Route: 048
  8. RIVOTRIL [Concomitant]
     Active Substance: CLONAZEPAM
     Indication: SLEEP DISORDER
     Dosage: 10 DRP, UNK
     Route: 048
  9. EXJADE [Suspect]
     Active Substance: DEFERASIROX
     Indication: THALASSAEMIA
     Dosage: 1 DF, QD
     Route: 048
     Dates: start: 20160526
  10. EXJADE [Suspect]
     Active Substance: DEFERASIROX
     Dosage: 500 MG, UNK
     Route: 048
  11. CEBRALAT [Concomitant]
     Active Substance: CILOSTAZOL
     Indication: CARDIOVASCULAR DISORDER
     Dosage: 1 DF, QD
     Route: 048
  12. CITONEURIN [Concomitant]
     Active Substance: CYANOCOBALAMIN\PYRIDOXINE HYDROCHLORIDE\THIAMINE
     Indication: PRODUCT USED FOR UNKNOWN INDICATION
     Dosage: 1 DF, QD
     Route: 048
  13. EXJADE [Suspect]
     Active Substance: DEFERASIROX
     Indication: LEUKAEMIA
     Dosage: 20 MG/KG, QD (1000 MG)
     Route: 048
     Dates: start: 201510
  14. LOSARTAN. [Concomitant]
     Active Substance: LOSARTAN
     Indication: HYPERTENSION
     Dosage: 0.5 DF, QD (25 MG (WHOLE TABLET IS 50 MG)
     Route: 065

REACTIONS (25)
  - Diarrhoea [Not Recovered/Not Resolved]
  - Abdominal discomfort [Unknown]
  - Abdominal pain [Unknown]
  - Urinary tract infection [Unknown]
  - Pollakiuria [Unknown]
  - Asthenia [Recovering/Resolving]
  - Tremor [Unknown]
  - Blood iron increased [Recovering/Resolving]
  - Pyrexia [Unknown]
  - Poor peripheral circulation [Unknown]
  - Abdominal pain upper [Unknown]
  - Urine output decreased [Unknown]
  - Weight decreased [Not Recovered/Not Resolved]
  - Malaise [Not Recovered/Not Resolved]
  - Nausea [Not Recovered/Not Resolved]
  - Delirium [Unknown]
  - Vomiting [Not Recovered/Not Resolved]
  - Diverticulitis [Unknown]
  - Body height decreased [Unknown]
  - Hypophagia [Unknown]
  - Peripheral swelling [Recovering/Resolving]
  - Disorientation [Not Recovered/Not Resolved]
  - Spinal disorder [Unknown]
  - Spinal pain [Unknown]
  - Cyanosis [Unknown]

NARRATIVE: CASE EVENT DATE: 201605
